FAERS Safety Report 7606534-0 (Version None)
Quarter: 2011Q3

REPORT INFORMATION
  Report Type: 
  Country: None (occurrence: None)
  Receive Date: 20110713
  Receipt Date: 20110710
  Transmission Date: 20111222
  Serious: Yes (Other)
  Sender: FDA-Public Use
  Company Number: US-PFIZER INC-2011155190

PATIENT
  Sex: Female
  Weight: 56.236 kg

DRUGS (14)
  1. ZETIA [Concomitant]
     Indication: BLOOD CHOLESTEROL INCREASED
     Dosage: 10 MG, 1X/DAY
  2. BONIVA [Concomitant]
     Indication: OSTEOPOROSIS
     Dosage: UNK
  3. CRESTOR [Concomitant]
     Indication: BLOOD CHOLESTEROL INCREASED
     Dosage: 20 MG, UNK
  4. VAGIFEM [Concomitant]
     Dosage: 25 MG, UNK
  5. TESTOSTERONE [Concomitant]
     Dosage: 1 MG, UNK
  6. LOVAZA [Concomitant]
     Indication: BLOOD CHOLESTEROL INCREASED
     Dosage: UNK, 2X/DAY
  7. OMEPRAZOLE [Concomitant]
     Indication: BARRETT'S OESOPHAGUS
     Dosage: 40 MG, 2X/DAY
  8. CALCIUM [Concomitant]
     Indication: OSTEOPOROSIS
     Dosage: UNK, 3X/DAY
  9. LYRICA [Suspect]
     Indication: MYALGIA
     Dosage: 150 MG, 2X/DAY
     Route: 048
     Dates: start: 20110601
  10. AMBIEN [Concomitant]
     Indication: SLEEP DISORDER
     Dosage: 10 MG, UNK
  11. LEVOTHYROXINE [Concomitant]
     Dosage: 50 MG, 1X/DAY
  12. PROAMATINE [Concomitant]
     Indication: POSTURAL ORTHOSTATIC TACHYCARDIA SYNDROME
     Dosage: UNK, 1X/DAY
  13. VITAMIN D [Concomitant]
     Dosage: UNK
  14. ESTROGENS [Concomitant]
     Dosage: 1 MG, UNK

REACTIONS (1)
  - BLOOD OESTROGEN DECREASED [None]
